FAERS Safety Report 10397370 (Version 1)
Quarter: 2014Q3

REPORT INFORMATION
  Report Type: Spontaneous
  Country: TT (occurrence: TT)
  Receive Date: 20140820
  Receipt Date: 20140820
  Transmission Date: 20150326
  Serious: Yes (Other)
  Sender: FDA-Public Use
  Company Number: TT-WATSON-2014-17828

PATIENT
  Age: 26 Year
  Sex: Female

DRUGS (2)
  1. METHYLPREDNISOLONE ACETATE (WATSON LABORATORIES) [Suspect]
     Active Substance: METHYLPREDNISOLONE ACETATE
     Indication: TENOSYNOVITIS STENOSANS
     Dosage: 24 MG, SINGLE
     Route: 035
  2. LIDOCAINE (UNKNOWN) [Suspect]
     Active Substance: LIDOCAINE
     Indication: TENOSYNOVITIS STENOSANS
     Dosage: 15 MG, SINGLE
     Route: 065

REACTIONS (2)
  - Exposure during breast feeding [Unknown]
  - Suppressed lactation [Recovered/Resolved]
